FAERS Safety Report 11631180 (Version 1)
Quarter: 2015Q4

REPORT INFORMATION
  Report Type: Not Available
  Country: US (occurrence: US)
  Receive Date: 20151014
  Receipt Date: 20151014
  Transmission Date: 20160304
  Serious: Yes (Hospitalization)
  Sender: FDA-Public Use
  Company Number: US-DARABIOSCIENCES-2015-US-000174

PATIENT
  Age: 46 Year
  Sex: Female

DRUGS (3)
  1. LEVOTHYROXINE. [Concomitant]
     Active Substance: LEVOTHYROXINE
  2. MULTIVITAMIN [Concomitant]
     Active Substance: VITAMINS
  3. TAMOXIFEN (NON-SPECIFIC) [Suspect]
     Active Substance: TAMOXIFEN
     Dosage: 2MG DAILY

REACTIONS (6)
  - Syncope [Unknown]
  - Portal vein thrombosis [Recovered/Resolved]
  - Oesophageal varices haemorrhage [Recovered/Resolved]
  - Haematemesis [Recovered/Resolved]
  - Splenomegaly [Unknown]
  - Anaemia [Unknown]
